FAERS Safety Report 5166997-X (Version None)
Quarter: 2006Q4

REPORT INFORMATION
  Report Type: 
  Country: None (occurrence: None)
  Receive Date: 20061201
  Receipt Date: 20061201
  Transmission Date: 20070319
  Serious: Yes (Hospitalization)
  Sender: FDA-Public Use
  Company Number: None

PATIENT
  Age: 44 Year
  Sex: Male
  Weight: 81.1939 kg

DRUGS (12)
  1. DOXORUBICIN 50MG/25ML [Suspect]
     Indication: HODGKIN'S DISEASE
     Dosage: 50 MG X1 IV
     Route: 042
     Dates: start: 20061117, end: 20061117
  2. ACETAMINOPHEN [Concomitant]
  3. ALUBTEROL [Concomitant]
  4. ALLOPRUINOL [Concomitant]
  5. DIPHENHYDRAMINE HCL [Concomitant]
  6. FILGRASTIM [Concomitant]
  7. IMIPENEM/CILASTATIN [Concomitant]
  8. METHYLPREDNISOLONE [Concomitant]
  9. OMEPRAZOLE [Concomitant]
  10. PROMETHAZINE [Concomitant]
  11. SODIUM CHLORIDE [Concomitant]
  12. VANCOMYCIN [Concomitant]

REACTIONS (8)
  - ANAPHYLACTOID REACTION [None]
  - CHILLS [None]
  - CONFUSIONAL STATE [None]
  - CYTOKINE RELEASE SYNDROME [None]
  - MALAISE [None]
  - PYREXIA [None]
  - TACHYCARDIA [None]
  - TACHYPNOEA [None]
